FAERS Safety Report 12144346 (Version 1)
Quarter: 2016Q1

REPORT INFORMATION
  Report Type: Spontaneous
  Country: US (occurrence: None)
  Receive Date: 20160303
  Receipt Date: 20160303
  Transmission Date: 20160526
  Serious: Yes (Hospitalization, Other)
  Sender: FDA-Public Use
  Company Number: None

PATIENT
  Age: 43 Year
  Sex: Female
  Weight: 90.72 kg

DRUGS (15)
  1. MERTAZAPINE [Concomitant]
     Active Substance: MIRTAZAPINE
  2. PREVACID [Concomitant]
     Active Substance: LANSOPRAZOLE
  3. METAPROPOL [Concomitant]
  4. LITHIUM. [Concomitant]
     Active Substance: LITHIUM
  5. MORPHINE [Concomitant]
     Active Substance: MORPHINE
  6. AMITRIPTYLIN [Concomitant]
     Active Substance: AMITRIPTYLINE
  7. LISINOPRIL. [Concomitant]
     Active Substance: LISINOPRIL
  8. HYDROCHLOROTHIAZIDE. [Concomitant]
     Active Substance: HYDROCHLOROTHIAZIDE
  9. LOVASTATIN. [Concomitant]
     Active Substance: LOVASTATIN
  10. LAMICTAL [Concomitant]
     Active Substance: LAMOTRIGINE
  11. CYMBALTA [Concomitant]
     Active Substance: DULOXETINE HYDROCHLORIDE
  12. CLONAZEPAM. [Concomitant]
     Active Substance: CLONAZEPAM
  13. CHANTIX [Suspect]
     Active Substance: VARENICLINE TARTRATE
     Indication: SMOKING CESSATION THERAPY
  14. FIORNAL WITH CODEINE [Concomitant]
  15. HYDROCODONE [Concomitant]
     Active Substance: HYDROCODONE

REACTIONS (3)
  - Anxiety [None]
  - Abnormal dreams [None]
  - Aggression [None]

NARRATIVE: CASE EVENT DATE: 20131016
